FAERS Safety Report 6474562-7 (Version None)
Quarter: 2009Q4

REPORT INFORMATION
  Report Type: 
  Country: None (occurrence: None)
  Receive Date: 20091204
  Receipt Date: 20091122
  Transmission Date: 20100525
  Serious: Yes (Other)
  Sender: FDA-Public Use
  Company Number: US-SANOFI-AVENTIS-2009SA005907

PATIENT
  Age: 50 Year
  Sex: Female

DRUGS (2)
  1. LANTUS [Suspect]
     Dosage: DOSE:35 UNIT(S)
     Route: 058
     Dates: start: 20020101
  2. OPTICLICK [Suspect]

REACTIONS (1)
  - RENAL FAILURE [None]
